FAERS Safety Report 9099630 (Version 1)
Quarter: 2013Q1

REPORT INFORMATION
  Report Type: Spontaneous
  Country: FR (occurrence: FR)
  Receive Date: 20130214
  Receipt Date: 20130214
  Transmission Date: 20140127
  Serious: Yes (Hospitalization)
  Sender: FDA-Public Use
  Company Number: FR-009507513-1302FRA003423

PATIENT
  Sex: Female

DRUGS (10)
  1. TEMODAL [Suspect]
     Indication: GLIOBLASTOMA
     Dosage: 200 MG, QD
     Route: 048
     Dates: start: 20100211, end: 20100329
  2. TEMODAL [Suspect]
     Dosage: 200 MG, QD
     Route: 048
     Dates: start: 201004, end: 201006
  3. IXPRIM (ACETAMINOPHEN (+) TRAMADOL HYDROCHLORIDE) [Suspect]
     Indication: PAIN
     Dosage: UNK
     Route: 048
     Dates: start: 20100412, end: 20100509
  4. IXPRIM (ACETAMINOPHEN (+) TRAMADOL HYDROCHLORIDE) [Suspect]
     Dosage: UNK
     Dates: start: 20110222, end: 20110223
  5. LEVOTHYROX [Concomitant]
     Indication: PRODUCT USED FOR UNKNOWN INDICATION
  6. CACIT VITAMINE D3 [Concomitant]
     Indication: PRODUCT USED FOR UNKNOWN INDICATION
  7. FOSAVANCE [Concomitant]
     Indication: PRODUCT USED FOR UNKNOWN INDICATION
  8. TANAKAN [Concomitant]
     Indication: PRODUCT USED FOR UNKNOWN INDICATION
  9. LANSOPRAZOLE [Concomitant]
     Indication: PRODUCT USED FOR UNKNOWN INDICATION
  10. SEROPLEX [Concomitant]
     Indication: PRODUCT USED FOR UNKNOWN INDICATION

REACTIONS (1)
  - Dermatitis exfoliative [Recovered/Resolved]
